FAERS Safety Report 14053434 (Version 1)
Quarter: 2017Q4

REPORT INFORMATION
  Report Type: Report from Study
  Country: US (occurrence: US)
  Receive Date: 20171005
  Receipt Date: 20171005
  Transmission Date: 20180321
  Serious: No
  Sender: FDA-Public Use
  Company Number: US-AMGEN-USASL2016185044

PATIENT
  Age: 71 Year
  Sex: Female
  Weight: 73.9 kg

DRUGS (1)
  1. PROLIA [Suspect]
     Active Substance: DENOSUMAB
     Indication: OSTEOPOROSIS POSTMENOPAUSAL
     Dosage: 60 MG, Q6MO
     Route: 058
     Dates: end: 20160329

REACTIONS (7)
  - Nausea [Unknown]
  - Constipation [Unknown]
  - Abdominal distension [Unknown]
  - Chest pain [Unknown]
  - Decreased appetite [Unknown]
  - Abdominal pain upper [Unknown]
  - Rash [Unknown]

NARRATIVE: CASE EVENT DATE: 20160329
